FAERS Safety Report 8486624-3 (Version None)
Quarter: 2012Q3

REPORT INFORMATION
  Report Type: 
  Country: None (occurrence: None)
  Receive Date: 20120703
  Receipt Date: 20120702
  Transmission Date: 20120928
  Serious: Yes (Hospitalization)
  Sender: FDA-Public Use
  Company Number: US-GILEAD-2012-0053193

PATIENT
  Sex: Female

DRUGS (3)
  1. ADCIRCA [Concomitant]
  2. LETAIRIS [Suspect]
     Indication: PULMONARY HYPERTENSION
     Dosage: 10 MG, UNK
     Route: 048
     Dates: start: 20110630
  3. LETAIRIS [Suspect]
     Dosage: UNK
     Route: 048
     Dates: start: 20110708

REACTIONS (3)
  - PULMONARY EMBOLISM [None]
  - OXYGEN SATURATION DECREASED [None]
  - DYSPNOEA [None]
